FAERS Safety Report 4280581-1 (Version None)
Quarter: 2004Q1

REPORT INFORMATION
  Report Type: 
  Country: None (occurrence: None)
  Receive Date: 20040127
  Receipt Date: 20040122
  Transmission Date: 20041129
  Serious: Yes (Hospitalization)
  Sender: FDA-Public Use
  Company Number: 2004195166FR

PATIENT
  Age: 97 Year
  Sex: Male
  Weight: 75 kg

DRUGS (8)
  1. DIPENTUM [Suspect]
     Indication: COLITIS
     Dosage: 500 MG, BID, ORAL
     Route: 048
     Dates: start: 20031125, end: 20031130
  2. VASTAREL (TRIMETAZIDINE HYDROCHLORIDE) [Concomitant]
  3. CARLYTENE (MOXISYLYTE HYDROCHLORIDE) [Concomitant]
  4. SERMION [Concomitant]
  5. ALLOPURINOL [Concomitant]
  6. LEVOTHYROXINE SODIUM [Concomitant]
  7. LECTIL (BETAHISTINE HYDROCHLORIDE) [Concomitant]
  8. ASPIRIN [Concomitant]

REACTIONS (1)
  - ACUTE PULMONARY OEDEMA [None]
